FAERS Safety Report 8827896 (Version 3)
Quarter: 2012Q4

REPORT INFORMATION
  Report Type: 
  Country: GB (occurrence: GB)
  Receive Date: 20121008
  Receipt Date: 20121221
  Transmission Date: 20130627
  Serious: Yes (Death, Other)
  Sender: FDA-Public Use
  Company Number: GB-JNJFOC-20121003116

PATIENT
  Age: 66 Year
  Sex: Female
  Weight: 90 kg

DRUGS (5)
  1. REOPRO [Suspect]
     Indication: THROMBOSIS
     Dosage: bolus and as infusion
     Route: 042
     Dates: start: 20120222, end: 20120222
  2. REOPRO [Suspect]
     Indication: MYOCARDIAL INFARCTION
     Dosage: bolus and as infusion
     Route: 042
     Dates: start: 20120222, end: 20120222
  3. EFFIENT [Suspect]
     Indication: PRODUCT USED FOR UNKNOWN INDICATION
     Route: 065
  4. HEPARIN [Concomitant]
     Route: 065
  5. BIVALIRUDIN [Concomitant]
     Route: 065

REACTIONS (2)
  - Retroperitoneal haemorrhage [Fatal]
  - Intestinal haemorrhage [Fatal]
